FAERS Safety Report 4372124-9 (Version None)
Quarter: 2004Q2

REPORT INFORMATION
  Report Type: 
  Country: None (occurrence: None)
  Receive Date: 20040603
  Receipt Date: 20040603
  Transmission Date: 20050107
  Serious: Yes (Hospitalization)
  Sender: FDA-Public Use
  Company Number: None

PATIENT
  Sex: Male
  Weight: 61.2356 kg

DRUGS (14)
  1. SPIRONOLACTONE [Suspect]
     Indication: CARDIAC FAILURE CONGESTIVE
     Dosage: 12.5MG QD ORAL
     Route: 048
     Dates: start: 20040219, end: 20040307
  2. TEMAZEPAM [Concomitant]
  3. DOCUSATE [Concomitant]
  4. M.V.I. [Concomitant]
  5. ALBUTER/IPRATROPIUM INH [Concomitant]
  6. ASCORBIC ACID [Concomitant]
  7. DIGOXIN [Concomitant]
  8. FOSINOPRIL SODIUM [Concomitant]
  9. GLIPIZIDE [Concomitant]
  10. MISOPROSTOL [Concomitant]
  11. NIACIN [Concomitant]
  12. CLOPIDOGREL BISULFATE [Concomitant]
  13. FUROSEMIDE [Concomitant]
  14. METOPROLOL SUCCINATE [Concomitant]

REACTIONS (4)
  - BLOOD POTASSIUM INCREASED [None]
  - MEDICATION ERROR [None]
  - METABOLIC ACIDOSIS [None]
  - SYNCOPE [None]
